FAERS Safety Report 12973468 (Version 1)
Quarter: 2016Q4

REPORT INFORMATION
  Report Type: Spontaneous
  Country: FR (occurrence: FR)
  Receive Date: 20161124
  Receipt Date: 20161124
  Transmission Date: 20170207
  Serious: Yes (Hospitalization, Other)
  Sender: FDA-Public Use
  Company Number: FR-009507513-1611FRA009306

PATIENT
  Age: 65 Year
  Sex: Female

DRUGS (2)
  1. XELEVIA [Suspect]
     Active Substance: SITAGLIPTIN PHOSPHATE
     Indication: TYPE 2 DIABETES MELLITUS
     Dosage: 100 MG, QD (1/DAY)
     Route: 048
     Dates: start: 20160401, end: 20160621
  2. LATANOPROST. [Concomitant]
     Active Substance: LATANOPROST
     Indication: PRODUCT USED FOR UNKNOWN INDICATION
     Dosage: UNK

REACTIONS (3)
  - Diplopia [Recovered/Resolved]
  - VIth nerve paralysis [Recovered/Resolved]
  - VIth nerve disorder [Recovered/Resolved]

NARRATIVE: CASE EVENT DATE: 20160427
